FAERS Safety Report 18208893 (Version 2)
Quarter: 2020Q3

REPORT INFORMATION
  Report Type: Report from Study
  Country: CA (occurrence: CA)
  Receive Date: 20200828
  Receipt Date: 20200914
  Transmission Date: 20201103
  Serious: Yes (Hospitalization, Other)
  Sender: FDA-Public Use
  Company Number: CA-TAKEDA-2020TUS036412

PATIENT
  Age: 25 Year
  Sex: Female

DRUGS (4)
  1. VALTRAX [Concomitant]
     Active Substance: DIAZEPAM\ISOPROPAMIDE IODIDE
     Indication: HERPES ZOSTER
     Dosage: UNK
  2. TRAMADOL. [Concomitant]
     Active Substance: TRAMADOL
     Dosage: UNK
  3. VEDOLIZUMAB [Suspect]
     Active Substance: VEDOLIZUMAB
     Dosage: 300 MILLIGRAM
     Route: 042
     Dates: start: 20200501
  4. VEDOLIZUMAB [Suspect]
     Active Substance: VEDOLIZUMAB
     Indication: CROHN^S DISEASE
     Dosage: 300 MILLIGRAM
     Route: 042
     Dates: start: 20190919

REACTIONS (2)
  - Sepsis [Unknown]
  - Off label use [Unknown]

NARRATIVE: CASE EVENT DATE: 20200501
